FAERS Safety Report 9313079 (Version 2)
Quarter: 2013Q3

REPORT INFORMATION
  Report Type: Spontaneous
  Country: US (occurrence: US)
  Receive Date: 20130528
  Receipt Date: 20130828
  Transmission Date: 20140515
  Serious: No
  Sender: FDA-Public Use
  Company Number: US-ABBOTT-13P-163-1088438-00

PATIENT
  Sex: Male
  Weight: 133.02 kg

DRUGS (9)
  1. ANDROGEL [Suspect]
     Indication: BLOOD TESTOSTERONE DECREASED
     Dates: start: 201209, end: 20121220
  2. ANDROGEL [Suspect]
     Dates: start: 20130107
  3. HYZAAR [Concomitant]
     Indication: HYPERTENSION
  4. FUROSEMIDE [Concomitant]
     Indication: HYPERTENSION
  5. KLOR-CON [Concomitant]
     Indication: PRODUCT USED FOR UNKNOWN INDICATION
  6. METFORMIN [Concomitant]
     Indication: DIABETES MELLITUS
  7. GLIPIZIDE [Concomitant]
     Indication: DIABETES MELLITUS
  8. TAMSULOSIN [Concomitant]
     Indication: URINARY TRACT DISORDER
  9. AMBIEN [Concomitant]
     Indication: INSOMNIA

REACTIONS (2)
  - Blood potassium decreased [Not Recovered/Not Resolved]
  - Hepatic enzyme increased [Recovered/Resolved]
